FAERS Safety Report 7889420-0 (Version None)
Quarter: 2011Q4

REPORT INFORMATION
  Report Type: 
  Country: None (occurrence: None)
  Receive Date: 20111103
  Receipt Date: 20111027
  Transmission Date: 20120403
  Serious: Yes (Hospitalization)
  Sender: FDA-Public Use
  Company Number: IT-BAYER-2011-094589

PATIENT
  Age: 75 Year
  Sex: Female

DRUGS (7)
  1. ASPIRIN [Suspect]
     Indication: PROPHYLAXIS
     Dosage: 100 MG, QD
     Route: 048
     Dates: start: 20100101, end: 20110923
  2. BISOPROLOL FUMARATE [Concomitant]
     Dosage: DAILY DOSE 1.25 MG
  3. METOPROLOL TARTRATE [Concomitant]
     Dosage: DAILY DOSE 100 MG
     Route: 048
  4. CLONAZEPAM [Concomitant]
     Dosage: DAILY DOSE 20 GTT
     Route: 048
  5. FUROSEMIDE [Concomitant]
     Dosage: DAILY DOSE 1 DF
  6. ATORVASTATIN CALCIUM [Concomitant]
     Dosage: DAILY DOSE 20 MG
     Route: 048
  7. PAROXETINE HCL [Concomitant]
     Dosage: DAILY DOSE 1 DF

REACTIONS (2)
  - ANAEMIA [None]
  - RECTAL HAEMORRHAGE [None]
